FAERS Safety Report 7935700-X (Version None)
Quarter: 2011Q4

REPORT INFORMATION
  Report Type: 
  Country: None (occurrence: None)
  Receive Date: 20111121
  Receipt Date: 20111111
  Transmission Date: 20120403
  Serious: Yes (Hospitalization)
  Sender: FDA-Public Use
  Company Number: 2011CP000182

PATIENT
  Sex: Female

DRUGS (2)
  1. OFIRMEV [Suspect]
     Indication: PROCEDURAL PAIN
     Dosage: 1 DOSAGE FORM; ONCE
     Dates: start: 20111101
  2. DILAUDID [Concomitant]

REACTIONS (3)
  - HEPATIC ENZYME INCREASED [None]
  - PYREXIA [None]
  - BLOOD BILIRUBIN INCREASED [None]
